FAERS Safety Report 9258175 (Version 1)
Quarter: 2013Q1

REPORT INFORMATION
  Report Type: Spontaneous
  Country: US (occurrence: None)
  Receive Date: 20121212
  Receipt Date: 20121212
  Transmission Date: 20140127
  Serious: No
  Sender: FDA-Public Use
  Company Number: 1208USA008645

PATIENT
  Age: 48 Year
  Sex: Male

DRUGS (3)
  1. PEGINTERFERON ALFA-2B [Suspect]
     Indication: HEPATITIS C
     Dates: start: 201205
  2. REBETOL [Suspect]
     Route: 048
  3. VICTRELIS [Suspect]

REACTIONS (5)
  - Drug dose omission [None]
  - Product quality issue [None]
  - Affect lability [None]
  - Overdose [None]
  - Hypoaesthesia [None]
